FAERS Safety Report 15065706 (Version 1)
Quarter: 2018Q2

REPORT INFORMATION
  Report Type: Spontaneous
  Country: US (occurrence: US)
  Receive Date: 20180605
  Receipt Date: 20180605
  Transmission Date: 20180711
  Serious: No
  Sender: FDA-Public Use
  Company Number: None

PATIENT
  Sex: Female
  Weight: 90.72 kg

DRUGS (3)
  1. OTEZLA [Suspect]
     Active Substance: APREMILAST
     Indication: PSORIATIC ARTHROPATHY
     Route: 048
     Dates: start: 201502
  2. NIFEDIPINE. [Concomitant]
     Active Substance: NIFEDIPINE
  3. OTEZLA [Suspect]
     Active Substance: APREMILAST
     Indication: JUVENILE PSORIATIC ARTHRITIS
     Route: 048
     Dates: start: 201502

REACTIONS (5)
  - Condition aggravated [None]
  - Swelling [None]
  - Musculoskeletal stiffness [None]
  - Tooth infection [None]
  - Nausea [None]
